FAERS Safety Report 8827914 (Version 2)
Quarter: 2012Q4

REPORT INFORMATION
  Report Type: 
  Country: US (occurrence: US)
  Receive Date: 20121005
  Receipt Date: 20121108
  Transmission Date: 20130627
  Serious: No
  Sender: FDA-Public Use
  Company Number: US-PFIZER INC-2012244291

PATIENT
  Sex: Female

DRUGS (1)
  1. CALAN [Suspect]
     Dosage: UNK
     Dates: start: 20000101

REACTIONS (3)
  - Asthma [Unknown]
  - Sinusitis [Unknown]
  - Bronchitis [Unknown]
